FAERS Safety Report 20091661 (Version 1)
Quarter: 2021Q4

REPORT INFORMATION
  Report Type: Spontaneous
  Country: US (occurrence: None)
  Receive Date: 20211119
  Receipt Date: 20211119
  Transmission Date: 20220303
  Serious: No
  Sender: FDA-Public Use
  Company Number: None

PATIENT
  Age: 78 Year
  Sex: Male
  Weight: 84.15 kg

DRUGS (2)
  1. ODOR EATERS MEDICATED FOOT POWDER [Suspect]
     Active Substance: MENTHOL
     Indication: Tinea pedis
     Dosage: OTHER QUANTITY : 1 SPRAY(S);?FREQUENCY : TWICE A DAY;?
     Route: 061
     Dates: start: 20210907, end: 20211118
  2. NORVASC [Concomitant]
     Active Substance: AMLODIPINE BESYLATE

REACTIONS (1)
  - Application site rash [None]

NARRATIVE: CASE EVENT DATE: 20211009
